FAERS Safety Report 10055860 (Version 1)
Quarter: 2014Q2

REPORT INFORMATION
  Report Type: Spontaneous
  Country: US (occurrence: None)
  Receive Date: 20140402
  Receipt Date: 20140402
  Transmission Date: 20141212
  Serious: Yes (Hospitalization)
  Sender: FDA-Public Use
  Company Number: None

PATIENT
  Age: 74 Year
  Sex: Female
  Weight: 50.67 kg

DRUGS (3)
  1. BELATACEPT [Suspect]
     Route: 042
     Dates: start: 20140304
  2. PREDNISONE [Concomitant]
  3. MYCOPHENOLATE [Concomitant]

REACTIONS (4)
  - Renal transplant [None]
  - JC virus test positive [None]
  - Deafness [None]
  - Nuclear magnetic resonance imaging abnormal [None]
